FAERS Safety Report 6561523-2 (Version None)
Quarter: 2010Q1

REPORT INFORMATION
  Report Type: 
  Country: None (occurrence: None)
  Receive Date: 20100130
  Receipt Date: 20091020
  Transmission Date: 20100710
  Serious: No
  Sender: FDA-Public Use
  Company Number: US-ABBOTT-09P-163-0604592-00

PATIENT
  Sex: Female
  Weight: 54.48 kg

DRUGS (11)
  1. HUMIRA [Suspect]
     Indication: CROHN'S DISEASE
     Dates: start: 20080101
  2. NEURONTIN [Concomitant]
     Indication: NEUROPATHY PERIPHERAL
  3. VITAMIN B-12 [Concomitant]
     Indication: VITAMIN B12 DECREASED
  4. OMEPRAZOLE [Concomitant]
     Indication: GASTROOESOPHAGEAL REFLUX DISEASE
  5. CYMBALTA [Concomitant]
     Indication: NEUROPATHY PERIPHERAL
  6. ALLEGRA [Concomitant]
     Indication: HYPERSENSITIVITY
  7. LOMOTIL [Concomitant]
     Indication: CROHN'S DISEASE
  8. MULTIPLE VITAMINS [Concomitant]
     Indication: VITAMIN SUPPLEMENTATION
  9. IRON [Concomitant]
     Indication: ANAEMIA
  10. CALCIUM MAGNESIUM ZINC [Concomitant]
     Indication: VITAMIN SUPPLEMENTATION
  11. VITAMIN E [Concomitant]
     Indication: VITAMIN SUPPLEMENTATION

REACTIONS (3)
  - ARTHRALGIA [None]
  - JOINT CREPITATION [None]
  - JOINT RANGE OF MOTION DECREASED [None]
